FAERS Safety Report 13246990 (Version 1)
Quarter: 2017Q1

REPORT INFORMATION
  Report Type: Spontaneous
  Country: US (occurrence: US)
  Receive Date: 20170217
  Receipt Date: 20170217
  Transmission Date: 20170428
  Serious: No
  Sender: FDA-Public Use
  Company Number: US-PERRIGO-16US015826

PATIENT
  Age: 70 Year
  Sex: Female
  Weight: 61.22 kg

DRUGS (3)
  1. OXYCODONE [Suspect]
     Active Substance: OXYCODONE
     Indication: PAIN
     Dosage: 1 TABLET, EVERY 6 HOURS
     Route: 048
     Dates: start: 20160501, end: 20160502
  2. CETIRIZINE HYDROCHLORIDE. [Suspect]
     Active Substance: CETIRIZINE HYDROCHLORIDE
     Indication: SINUS CONGESTION
     Dosage: 10 MG, SINGLE
     Route: 048
     Dates: start: 20160501, end: 20160501
  3. AMOXCLAV /00852501/ [Suspect]
     Active Substance: AMOXICILLIN\CLAVULANIC ACID
     Indication: SINUS CONGESTION
     Dosage: 1 TABLET, EVERY 12 HOURS
     Route: 048
     Dates: start: 20160501, end: 20160502

REACTIONS (4)
  - Drug administered to patient of inappropriate age [Recovered/Resolved]
  - Vomiting [Recovered/Resolved]
  - Nausea [Not Recovered/Not Resolved]
  - Drug ineffective for unapproved indication [Unknown]

NARRATIVE: CASE EVENT DATE: 20160501
